FAERS Safety Report 17284697 (Version 1)
Quarter: 2020Q1

REPORT INFORMATION
  Report Type: Spontaneous
  Country: FR (occurrence: FR)
  Receive Date: 20200117
  Receipt Date: 20200117
  Transmission Date: 20200409
  Serious: Yes (Other)
  Sender: FDA-Public Use
  Company Number: FR-JNJFOC-20200120212

PATIENT
  Age: 69 Year
  Sex: Male

DRUGS (3)
  1. PREVISCAN [FLUINDIONE] [Interacting]
     Active Substance: FLUINDIONE
     Indication: PULMONARY EMBOLISM
     Dosage: 20 MG, 1/DAY
     Route: 048
     Dates: start: 2003
  2. DOLIPRANE [Concomitant]
     Active Substance: ACETAMINOPHEN
     Indication: PAIN
     Dosage: 3 G, 1/DAY
     Route: 048
     Dates: start: 20191115
  3. TRAMADOL HYDROCHLORIDE. [Suspect]
     Active Substance: TRAMADOL HYDROCHLORIDE
     Indication: PAIN
     Dosage: 150 MG, 1/DAY
     Route: 048
     Dates: start: 20191105

REACTIONS (5)
  - Haematoma [Unknown]
  - Drug interaction [Unknown]
  - International normalised ratio increased [Unknown]
  - Rectal haemorrhage [Unknown]
  - Haematuria [Unknown]

NARRATIVE: CASE EVENT DATE: 20191113
